FAERS Safety Report 7097482-6 (Version None)
Quarter: 2010Q4

REPORT INFORMATION
  Report Type: 
  Country: None (occurrence: None)
  Receive Date: 20101111
  Receipt Date: 20100914
  Transmission Date: 20110411
  Serious: Yes (Hospitalization)
  Sender: FDA-Public Use
  Company Number: PHHY2010US71718

PATIENT
  Age: 18 Year
  Sex: Male

DRUGS (2)
  1. CYCLOSPORINE [Suspect]
     Indication: LIVER TRANSPLANT
  2. PREDNISONE [Concomitant]

REACTIONS (10)
  - AUTONOMIC NERVOUS SYSTEM IMBALANCE [None]
  - BRAIN INJURY [None]
  - CEREBRAL ISCHAEMIA [None]
  - COMA [None]
  - ESCHERICHIA SEPSIS [None]
  - HEMIPARESIS [None]
  - HEPATIC FAILURE [None]
  - LIVER TRANSPLANT [None]
  - PARTIAL SEIZURES [None]
  - PYREXIA [None]
